FAERS Safety Report 7668596-4 (Version None)
Quarter: 2011Q3

REPORT INFORMATION
  Report Type: 
  Country: None (occurrence: None)
  Receive Date: 20110808
  Receipt Date: 20110808
  Transmission Date: 20111222
  Serious: Yes (Death)
  Sender: FDA-Public Use
  Company Number: None

PATIENT
  Age: 89 Year
  Sex: Male
  Weight: 89.7 kg

DRUGS (1)
  1. VISIPAQUE [Suspect]
     Indication: ANGIOGRAM
     Dosage: 120 ML
     Route: 040
     Dates: start: 20110525, end: 20110525

REACTIONS (7)
  - RESPIRATORY FAILURE [None]
  - ANAPHYLACTIC REACTION [None]
  - CONTINUOUS HAEMODIAFILTRATION [None]
  - SWELLING FACE [None]
  - STRIDOR [None]
  - CIRCULATORY COLLAPSE [None]
  - MULTI-ORGAN FAILURE [None]
